FAERS Safety Report 9701591 (Version 2)
Quarter: 2013Q4

REPORT INFORMATION
  Report Type: Spontaneous
  Country: US (occurrence: US)
  Receive Date: 20131119
  Receipt Date: 20131119
  Transmission Date: 20140711
  Serious: No
  Sender: FDA-Public Use
  Company Number: US-ORACLE-2011S1000084

PATIENT
  Age: 41 Year
  Sex: Male

DRUGS (3)
  1. KRYSTEXXA INJECTION [Suspect]
     Indication: GOUT
     Route: 042
     Dates: start: 20111006, end: 20111006
  2. COLCHICINE [Concomitant]
     Indication: GOUT
  3. ALLOPURINOL [Concomitant]
     Indication: GOUT
     Dates: end: 20111005

REACTIONS (1)
  - Gout [Recovering/Resolving]
